FAERS Safety Report 8972155 (Version 1)
Quarter: 2012Q4

REPORT INFORMATION
  Report Type: Spontaneous
  Country: US (occurrence: None)
  Receive Date: 20121211
  Receipt Date: 20121211
  Transmission Date: 20130627
  Serious: Yes (Other)
  Sender: FDA-Public Use
  Company Number: AUR-APL-2012-05205

PATIENT
  Age: 51 Year
  Sex: Female

DRUGS (2)
  1. TRIMETHOPRIM AND SULFAMETHOXAZOLE [Suspect]
     Indication: INFECTION
  2. CEFALEXIN [Suspect]
     Indication: INFECTION

REACTIONS (9)
  - Malaise [None]
  - Pyrexia [None]
  - Macule [None]
  - Ulcer [None]
  - Anaemia [None]
  - Thrombocytopenia [None]
  - Coagulopathy [None]
  - Liver function test abnormal [None]
  - Antiphospholipid antibodies positive [None]
